FAERS Safety Report 23605847 (Version 1)
Quarter: 2024Q1

REPORT INFORMATION
  Report Type: Spontaneous
  Country: US (occurrence: US)
  Receive Date: 20240307
  Receipt Date: 20240307
  Transmission Date: 20240409
  Serious: No
  Sender: FDA-Public Use
  Company Number: US-BAYER-2024A032862

PATIENT
  Sex: Male

DRUGS (2)
  1. MIRALAX [Suspect]
     Active Substance: POLYETHYLENE GLYCOL 3350
     Dosage: UNK, 1 PACKET OF MIRALAX WITH 8 OZ OF LIQUID
  2. BISACODYL [Suspect]
     Active Substance: BISACODYL
     Dosage: UNK

REACTIONS (1)
  - Wrong technique in product usage process [Unknown]
